FAERS Safety Report 5029112-9 (Version None)
Quarter: 2006Q2

REPORT INFORMATION
  Report Type: 
  Country: None (occurrence: None)
  Receive Date: 20060619
  Receipt Date: 20050614
  Transmission Date: 20061013
  Serious: Yes (Hospitalization)
  Sender: FDA-Public Use
  Company Number: US-BRISTOL-MYERS SQUIBB COMPANY-13005533

PATIENT
  Age: 73 Year
  Sex: Male
  Weight: 88 kg

DRUGS (3)
  1. METFORMIN HYDROCHLORIDE [Suspect]
     Route: 048
     Dates: start: 20040501
  2. METFORMIN HCL [Suspect]
     Route: 048
     Dates: start: 20050101, end: 20050101
  3. HYDROCHLOROTHIAZIDE [Concomitant]

REACTIONS (6)
  - CARDIAC FAILURE CONGESTIVE [None]
  - FALL [None]
  - FATIGUE [None]
  - MUSCLE ATROPHY [None]
  - MUSCULAR WEAKNESS [None]
  - WEIGHT DECREASED [None]
